FAERS Safety Report 7870086 (Version 3)
Quarter: 2014Q1

REPORT INFORMATION
  Report Type: Spontaneous
  Country: US (occurrence: US)
  Receive Date: 20110324
  Receipt Date: 20140110
  Transmission Date: 20141002
  Serious: Yes (Hospitalization)
  Sender: FDA-Public Use
  Company Number: US-BAYER-2011-025298

PATIENT
  Age: 30 Year
  Sex: Female
  Weight: 61 kg

DRUGS (13)
  1. YASMIN [Suspect]
     Dosage: UNK
     Route: 048
     Dates: start: 20060530, end: 200902
  2. YAZ [Suspect]
     Dosage: UNK
     Route: 048
     Dates: start: 20060530, end: 200902
  3. SUBOXONE [Concomitant]
     Route: 060
  4. FLUTICASONE [Concomitant]
     Dosage: 2 U, UNK
     Route: 045
  5. AZITHROMYCIN [Concomitant]
     Dosage: 250 MG, UNK
     Route: 048
  6. OXYCODONE/APAP [Concomitant]
     Dosage: UNK UNK, PRN
     Route: 048
  7. IBUPROFEN [Concomitant]
     Dosage: 800 MG, PRN
     Route: 048
  8. DICYCLOMINE [Concomitant]
     Dosage: 20 MG, PRN
     Route: 048
  9. ALPRAZOLAM [Concomitant]
     Dosage: 0.5 MG, PRN
     Route: 048
  10. LEXAPRO [Concomitant]
     Dosage: 10 MG, UNK
     Route: 048
  11. CIPROFLOXACIN [Concomitant]
     Dosage: 500 MG, BID
     Route: 048
  12. METRONIDAZOLE [Concomitant]
     Dosage: 500 MG, TID
     Route: 048
  13. PROPOXYPHENE [Concomitant]
     Dosage: UNK UNK, PRN
     Route: 048

REACTIONS (10)
  - Gallbladder disorder [None]
  - Cholelithiasis [None]
  - Uterine leiomyoma [None]
  - Pain [None]
  - Endometriosis [None]
  - Ovarian cyst [None]
  - Bipolar disorder [None]
  - Injury [None]
  - Anxiety [None]
  - Anhedonia [None]
